FAERS Safety Report 7472143-X (Version None)
Quarter: 2011Q2

REPORT INFORMATION
  Report Type: 
  Country: None (occurrence: None)
  Receive Date: 20110511
  Receipt Date: 20110119
  Transmission Date: 20111010
  Serious: No
  Sender: FDA-Public Use
  Company Number: A0909192A

PATIENT
  Age: 62 Year
  Sex: Female
  Weight: 75 kg

DRUGS (4)
  1. CYMBALTA [Concomitant]
  2. VITAMIN D [Concomitant]
  3. WELLBUTRIN [Concomitant]
  4. TYKERB [Suspect]
     Dosage: 1000MG PER DAY
     Route: 048

REACTIONS (2)
  - DIARRHOEA [None]
  - SKIN EXFOLIATION [None]
